FAERS Safety Report 12999069 (Version 1)
Quarter: 2016Q4

REPORT INFORMATION
  Report Type: Spontaneous
  Country: US (occurrence: US)
  Receive Date: 20161205
  Receipt Date: 20161205
  Transmission Date: 20170207
  Serious: No
  Sender: FDA-Public Use
  Company Number: US-GLAXOSMITHKLINE-US2016176757

PATIENT
  Age: 72 Year
  Sex: Female

DRUGS (2)
  1. ABREVA [Suspect]
     Active Substance: DOCOSANOL
     Dosage: UNK, 5 TIMES A DAY
     Dates: start: 20161127
  2. ABREVA [Suspect]
     Active Substance: DOCOSANOL
     Indication: ORAL HERPES
     Dosage: UNK

REACTIONS (4)
  - Oral herpes [Not Recovered/Not Resolved]
  - Condition aggravated [Not Recovered/Not Resolved]
  - Inappropriate schedule of drug administration [Unknown]
  - Lip swelling [Not Recovered/Not Resolved]

NARRATIVE: CASE EVENT DATE: 20161127
